FAERS Safety Report 8256438-8 (Version None)
Quarter: 2012Q2

REPORT INFORMATION
  Report Type: 
  Country: None (occurrence: None)
  Receive Date: 20120402
  Receipt Date: 20120402
  Transmission Date: 20120825
  Serious: Yes (Hospitalization)
  Sender: FDA-Public Use
  Company Number: None

PATIENT
  Age: 61 Year
  Sex: Male
  Weight: 93 kg

DRUGS (1)
  1. INSULIN [Suspect]
     Indication: TYPE 1 DIABETES MELLITUS
     Dosage: 10 UNITS TID SQ
     Route: 058
     Dates: start: 20100107, end: 20120323

REACTIONS (5)
  - MENTAL STATUS CHANGES [None]
  - TREATMENT NONCOMPLIANCE [None]
  - HYPOGLYCAEMIA [None]
  - CONFUSIONAL STATE [None]
  - INCORRECT DOSE ADMINISTERED [None]
